FAERS Safety Report 18990254 (Version 5)
Quarter: 2021Q3

REPORT INFORMATION
  Report Type: Report from Study
  Country: FR (occurrence: FR)
  Receive Date: 20210310
  Receipt Date: 20210923
  Transmission Date: 20211014
  Serious: Yes (Other)
  Sender: FDA-Public Use
  Company Number: FR-JNJFOC-20201242713

PATIENT
  Age: 35 Year
  Sex: Male

DRUGS (16)
  1. SERTRALINE [Concomitant]
     Active Substance: SERTRALINE HYDROCHLORIDE
     Route: 065
     Dates: start: 20201130
  2. PRAMIPEXOLE. [Concomitant]
     Active Substance: PRAMIPEXOLE
     Indication: SEDATIVE THERAPY
     Route: 065
     Dates: start: 20200909
  3. OXAZEPAM. [Concomitant]
     Active Substance: OXAZEPAM
     Indication: ANXIOLYTIC THERAPY
     Route: 065
     Dates: end: 20201217
  4. SPRAVATO [Suspect]
     Active Substance: ESKETAMINE
     Dosage: 84 MG, 28 TOTAL DOSES
     Dates: start: 20210112, end: 20210713
  5. SERTRALINE [Concomitant]
     Active Substance: SERTRALINE HYDROCHLORIDE
     Route: 065
     Dates: start: 20200930
  6. VALPROIC ACID. [Concomitant]
     Active Substance: VALPROIC ACID
     Indication: ANTIDEPRESSANT THERAPY
     Route: 065
  7. PAROXETINE. [Concomitant]
     Active Substance: PAROXETINE
     Indication: ANTIDEPRESSANT THERAPY
     Route: 065
  8. SERTRALINE [Concomitant]
     Active Substance: SERTRALINE HYDROCHLORIDE
     Indication: ANTIDEPRESSANT THERAPY
     Route: 065
  9. LITHIUM. [Concomitant]
     Active Substance: LITHIUM
     Indication: ANTIDEPRESSANT THERAPY
     Route: 065
  10. SPRAVATO [Suspect]
     Active Substance: ESKETAMINE
     Dosage: 84 MG, 6 TOTAL DOSES
     Dates: start: 20201203, end: 20201228
  11. SPRAVATO [Suspect]
     Active Substance: ESKETAMINE
     Dosage: 56  MG, 1 TOTAL DOSE
     Dates: start: 20210105, end: 20210105
  12. PRAMIPEXOLE. [Concomitant]
     Active Substance: PRAMIPEXOLE
     Route: 065
     Dates: start: 20200930
  13. VENLAFAXINE [Concomitant]
     Active Substance: VENLAFAXINE HYDROCHLORIDE
     Indication: ANTIDEPRESSANT THERAPY
     Route: 065
  14. OXAZEPAM. [Concomitant]
     Active Substance: OXAZEPAM
     Route: 065
     Dates: start: 20201217
  15. SPRAVATO [Suspect]
     Active Substance: ESKETAMINE
     Indication: DEPRESSION
     Dosage: 56 MG, 4 TOTAL DOSES
     Dates: start: 20201117, end: 20201127
  16. LAMOTRIGINE. [Concomitant]
     Active Substance: LAMOTRIGINE
     Indication: DRUG THERAPY
     Route: 065
     Dates: start: 20200909

REACTIONS (5)
  - Drug ineffective [Recovered/Resolved]
  - Blood pressure increased [Recovered/Resolved]
  - Nausea [Unknown]
  - Drug dependence [Unknown]
  - Somnolence [Recovered/Resolved]

NARRATIVE: CASE EVENT DATE: 20201119
